FAERS Safety Report 9499791 (Version 2)
Quarter: 2013Q4

REPORT INFORMATION
  Report Type: Report from Study
  Country: CA (occurrence: CA)
  Receive Date: 20130905
  Receipt Date: 20131115
  Transmission Date: 20140711
  Serious: Yes (Hospitalization)
  Sender: FDA-Public Use
  Company Number: CA-JNJFOC-20130900104

PATIENT
  Age: 64 Year
  Sex: Male
  Weight: 49.1 kg

DRUGS (10)
  1. REMICADE [Suspect]
     Indication: CROHN^S DISEASE
     Dosage: RECEIVED 53 INFUSIONS TILL DATE. ??V-1 RECEIVED 54 INFUSIONS TILL DATE
     Route: 042
  2. ATENOLOL [Concomitant]
     Route: 065
  3. CIPRO [Concomitant]
     Route: 065
  4. PANTOLOC [Concomitant]
     Route: 065
  5. FOLIC ACID [Concomitant]
     Route: 065
  6. CELEBREX [Concomitant]
     Route: 065
  7. TRIFAMOX [Concomitant]
     Route: 065
  8. HCTZ [Concomitant]
     Route: 065
  9. NOVASEN [Concomitant]
     Route: 065
  10. SALOFALK [Concomitant]
     Route: 065

REACTIONS (2)
  - Myocardial infarction [Recovering/Resolving]
  - Intestinal obstruction [Recovered/Resolved]
